FAERS Safety Report 9254672 (Version 1)
Quarter: 2013Q1

REPORT INFORMATION
  Report Type: Spontaneous
  Country: US (occurrence: None)
  Receive Date: 20121210
  Receipt Date: 20121210
  Transmission Date: 20140127
  Serious: No
  Sender: FDA-Public Use
  Company Number: 1209USA003996

PATIENT
  Sex: Female

DRUGS (2)
  1. ZIOPTAN [Suspect]
     Route: 047
  2. XALATAN (LATANOPROST) [Suspect]
     Dosage: 2 GIT, QD, OPTHALMIC
     Route: 047

REACTIONS (7)
  - Blepharospasm [None]
  - Eye infection [None]
  - Growth of eyelashes [None]
  - Ocular hyperaemia [None]
  - Headache [None]
  - Eyelid oedema [None]
  - Eye irritation [None]
